FAERS Safety Report 7244386-1 (Version None)
Quarter: 2011Q1

REPORT INFORMATION
  Report Type: 
  Country: None (occurrence: None)
  Receive Date: 20110125
  Receipt Date: 20100709
  Transmission Date: 20110831
  Serious: Yes (Life-Threatening, Hospitalization, Disabling)
  Sender: FDA-Public Use
  Company Number: US-PFIZER INC-2010085938

PATIENT
  Age: 66 Year
  Sex: Male

DRUGS (10)
  1. INSULIN [Concomitant]
  2. ARGATROBAN [Suspect]
     Dosage: 1.5 UG/KG, MIN
     Dates: start: 20100708
  3. MEROPENEM [Concomitant]
  4. HEPARIN [Concomitant]
  5. METRONIDAZOLE [Concomitant]
  6. VANCOMYCIN [Concomitant]
  7. MILRINONE [Concomitant]
  8. PROPOFOL [Concomitant]
  9. ARGATROBAN [Suspect]
     Indication: HEPARIN-INDUCED THROMBOCYTOPENIA
     Dosage: 2 UG/KG/MIN
     Route: 042
     Dates: start: 20100708
  10. INTEGRILIN [Concomitant]

REACTIONS (1)
  - LIVER FUNCTION TEST ABNORMAL [None]
